FAERS Safety Report 11553317 (Version 2)
Quarter: 2015Q4

REPORT INFORMATION
  Report Type: Spontaneous
  Country: US (occurrence: US)
  Receive Date: 20150925
  Receipt Date: 20151106
  Transmission Date: 20160304
  Serious: No
  Sender: FDA-Public Use
  Company Number: US-009507513-1509USA012927

PATIENT

DRUGS (1)
  1. HEXADROL [Suspect]
     Active Substance: DEXAMETHASONE
     Indication: MENIERE^S DISEASE
     Dosage: 24 MG/ML, INTRATYMPANIC, 3 PERFUSIONS SEPARATED BY 10 MINUTES FOR A TOTAL OF 1 ML X 4 TIMES

REACTIONS (1)
  - Drug ineffective [Unknown]
